FAERS Safety Report 4911191-8 (Version None)
Quarter: 2006Q1

REPORT INFORMATION
  Report Type: 
  Country: None (occurrence: None)
  Receive Date: 20060209
  Receipt Date: 20060130
  Transmission Date: 20060701
  Serious: Yes (Life-Threatening, Hospitalization)
  Sender: FDA-Public Use
  Company Number: HEX05120001-01

PATIENT
  Age: 69 Year
  Sex: Male

DRUGS (2)
  1. HEXVIX [Suspect]
     Indication: BLADDER CANCER RECURRENT
     Dosage: 100 MG (ONCE)
     Route: 043
     Dates: start: 20050831, end: 20050831
  2. MARCAIN SPINAL (MARCAIN SPINAL)(SODIUM HYDROXIDE, SODIUM CHLORIDE, BUP [Concomitant]

REACTIONS (6)
  - ATRIAL FIBRILLATION [None]
  - BLOOD PRESSURE DECREASED [None]
  - DRUG HYPERSENSITIVITY [None]
  - LOSS OF CONSCIOUSNESS [None]
  - URTICARIA [None]
  - VOMITING [None]
